FAERS Safety Report 18731914 (Version 1)
Quarter: 2021Q1

REPORT INFORMATION
  Report Type: Spontaneous
  Country: US (occurrence: US)
  Receive Date: 20210112
  Receipt Date: 20210112
  Transmission Date: 20210419
  Serious: Yes (Hospitalization)
  Sender: FDA-Public Use
  Company Number: US-ADAREPHARM-2020-US-000131

PATIENT
  Age: 40 Year
  Sex: Male

DRUGS (2)
  1. METHIMAZOLE. [Concomitant]
     Active Substance: METHIMAZOLE
     Indication: THYROTOXIC CRISIS
  2. PROPRANOLOL [Suspect]
     Active Substance: PROPRANOLOL HYDROCHLORIDE
     Indication: BASEDOW^S DISEASE

REACTIONS (11)
  - Temperature intolerance [Unknown]
  - Dyspnoea [Unknown]
  - Product use in unapproved indication [Unknown]
  - Hypoaesthesia [Unknown]
  - Non-pitting oedema [Unknown]
  - Palpitations [Unknown]
  - Paraesthesia [Unknown]
  - Treatment noncompliance [Unknown]
  - Weight decreased [Unknown]
  - Tremor [Unknown]
  - Exophthalmos [Unknown]
